FAERS Safety Report 4368224-X (Version None)
Quarter: 2004Q2

REPORT INFORMATION
  Report Type: 
  Country: None (occurrence: None)
  Receive Date: 20040527
  Receipt Date: 20040506
  Transmission Date: 20050107
  Serious: Yes (Life-Threatening, Hospitalization)
  Sender: FDA-Public Use
  Company Number: A01200402191

PATIENT
  Age: 17 Year
  Sex: Female

DRUGS (3)
  1. QUENSYL - HYDROXYCHLOROQUINE SULFATE - TABLET - UNIT DOSE  : UNKNOWN [Suspect]
     Indication: RHEUMATOID ARTHRITIS
     Dosage: 22 G ONCE ORAL
     Route: 048
  2. HYDROCORTISONE [Concomitant]
  3. ASPIRIN [Concomitant]

REACTIONS (9)
  - ELECTROCARDIOGRAM QT PROLONGED [None]
  - HYPOKALAEMIA [None]
  - HYPOTENSION [None]
  - INTENTIONAL OVERDOSE [None]
  - PULSE ABSENT [None]
  - SUICIDE ATTEMPT [None]
  - TORSADE DE POINTES [None]
  - VENTRICULAR EXTRASYSTOLES [None]
  - VENTRICULAR TACHYCARDIA [None]
